FAERS Safety Report 18636319 (Version 1)
Quarter: 2020Q4

REPORT INFORMATION
  Report Type: Report from Study
  Country: US (occurrence: US)
  Receive Date: 20201218
  Receipt Date: 20201218
  Transmission Date: 20210114
  Serious: No
  Sender: FDA-Public Use
  Company Number: US-REGENERON PHARMACEUTICALS, INC.-2020-40491

PATIENT

DRUGS (3)
  1. EYLEA [Suspect]
     Active Substance: AFLIBERCEPT
     Dosage: 2 MG,BOTH EYES, MONTHLY, LAST DOSE
     Route: 031
     Dates: start: 20200509, end: 20200509
  2. EYLEA [Suspect]
     Active Substance: AFLIBERCEPT
     Indication: DIABETIC RETINAL OEDEMA
     Dosage: 2 MG, BOTH EYES, ONCE A MONTH
     Route: 031
     Dates: start: 2019
  3. EYLEA [Suspect]
     Active Substance: AFLIBERCEPT
     Indication: DIABETIC RETINOPATHY
     Dosage: 2 MG, BOTH EYES, EVERY 6 MONTHS
     Route: 031
     Dates: start: 2017

REACTIONS (2)
  - Drug ineffective [Unknown]
  - Refusal of treatment by patient [Unknown]
